FAERS Safety Report 5434262-9 (Version None)
Quarter: 2007Q3

REPORT INFORMATION
  Report Type: 
  Country: None (occurrence: None)
  Receive Date: 20070828
  Receipt Date: 20070828
  Transmission Date: 20080115
  Serious: Yes (Death)
  Sender: FDA-Public Use
  Company Number: None

PATIENT
  Sex: Male
  Weight: 73.9363 kg

DRUGS (13)
  1. ALIMTA [Suspect]
     Indication: NEOPLASM MALIGNANT
     Dosage: 500MG/M2 IV Q 3 WEEKS
     Route: 042
     Dates: start: 20070515, end: 20070807
  2. AVASTIN [Suspect]
     Indication: NEOPLASM MALIGNANT
     Dosage: 15MG IV Q 3 WEEKS
     Route: 042
     Dates: start: 20070515, end: 20070807
  3. OXYCODONE HCL [Concomitant]
  4. FENTANYL [Concomitant]
  5. TRAZODONE HCL [Concomitant]
  6. FOLIC ACID [Concomitant]
  7. NEURONTIN [Concomitant]
  8. VIT B12 SHOTS [Concomitant]
  9. SYNTHROID [Concomitant]
  10. ZANTAC 150 [Concomitant]
  11. VALIUM [Concomitant]
  12. LIDODERM [Concomitant]
  13. COLACE/SENNA [Concomitant]

REACTIONS (2)
  - DRUG TOXICITY [None]
  - TRACHEAL HAEMORRHAGE [None]
